FAERS Safety Report 10037579 (Version 1)
Quarter: 2014Q1

REPORT INFORMATION
  Report Type: Spontaneous
  Country: US (occurrence: None)
  Receive Date: 20140325
  Receipt Date: 20140325
  Transmission Date: 20141002
  Serious: Yes (Hospitalization)
  Sender: FDA-Public Use
  Company Number: None

PATIENT
  Age: 87 Year
  Sex: Male
  Weight: 90 kg

DRUGS (10)
  1. XARELTO 10 MG JANSSEN [Suspect]
     Indication: ATRIAL FIBRILLATION
     Route: 048
     Dates: start: 20140219, end: 20140226
  2. SYMBICORT INHALER [Concomitant]
  3. CHOLECALCIFAL [Concomitant]
  4. NEXIUM [Concomitant]
  5. LASIX ORAL [Concomitant]
  6. NORCO [Concomitant]
  7. LEVAQUIN ORAL [Concomitant]
  8. THYROID [Concomitant]
  9. LOSAARTEN [Concomitant]
  10. IMDUR [Concomitant]

REACTIONS (2)
  - Gastrointestinal haemorrhage [None]
  - Haemoptysis [None]
